FAERS Safety Report 23222348 (Version 3)
Quarter: 2024Q1

REPORT INFORMATION
  Report Type: Report from Study
  Country: US (occurrence: US)
  Receive Date: 20231123
  Receipt Date: 20240129
  Transmission Date: 20240410
  Serious: Yes (Other)
  Sender: FDA-Public Use
  Company Number: US-ABBVIE-4332637

PATIENT
  Age: 38 Year
  Sex: Female

DRUGS (3)
  1. HUMIRA [Suspect]
     Active Substance: ADALIMUMAB
     Indication: Psoriatic arthropathy
     Dosage: CITRATE FREE?FORM STRENGTH: 40 MG
     Route: 058
     Dates: start: 20220715
  2. HUMIRA [Suspect]
     Active Substance: ADALIMUMAB
     Dosage: FORM STRENGTH- 40 MG?CITRATE FREE
     Route: 058
  3. HUMIRA [Suspect]
     Active Substance: ADALIMUMAB
     Dosage: FORM STRENGTH- 40 MG?CITRATE FREE
     Route: 058

REACTIONS (15)
  - Therapeutic nerve ablation [Unknown]
  - Injection site erythema [Unknown]
  - Injection site haemorrhage [Recovered/Resolved]
  - Nasopharyngitis [Unknown]
  - Injection site mass [Unknown]
  - Malaise [Unknown]
  - Nasopharyngitis [Unknown]
  - Arthralgia [Unknown]
  - Injection site pruritus [Unknown]
  - Fibromyalgia [Unknown]
  - COVID-19 [Unknown]
  - Pain [Unknown]
  - Back pain [Unknown]
  - Lymphoedema [Unknown]
  - Injection site urticaria [Recovered/Resolved]

NARRATIVE: CASE EVENT DATE: 20220727
